FAERS Safety Report 7257610-6 (Version None)
Quarter: 2011Q1

REPORT INFORMATION
  Report Type: 
  Country: None (occurrence: None)
  Receive Date: 20110129
  Receipt Date: 20100604
  Transmission Date: 20110831
  Serious: No
  Sender: FDA-Public Use
  Company Number: US-ABBOTT-10P-163-0649415-00

PATIENT
  Sex: Female
  Weight: 69.462 kg

DRUGS (2)
  1. HUMIRA [Suspect]
     Indication: CROHN'S DISEASE
     Route: 058
     Dates: start: 20090301, end: 20100618
  2. LOTREL [Concomitant]
     Indication: HYPERTENSION
     Dosage: 10/40 DAILY
     Route: 048

REACTIONS (2)
  - PAIN IN EXTREMITY [None]
  - VISION BLURRED [None]
